FAERS Safety Report 7392555-2 (Version None)
Quarter: 2011Q1

REPORT INFORMATION
  Report Type: 
  Country: None (occurrence: None)
  Receive Date: 20110324
  Receipt Date: 20101207
  Transmission Date: 20110831
  Serious: Yes (Hospitalization)
  Sender: FDA-Public Use
  Company Number: 2010US005000

PATIENT
  Age: 63 Year
  Sex: Male

DRUGS (4)
  1. PREDNISONE [Concomitant]
  2. MYCOPHENOLATE MOFETIL [Concomitant]
  3. PROGRAF [Suspect]
     Indication: HEART TRANSPLANT
  4. PROGRAF [Suspect]
     Indication: RENAL TRANSPLANT

REACTIONS (1)
  - OPTIC NEUROPATHY [None]
